FAERS Safety Report 8244845-9 (Version None)
Quarter: 2012Q1

REPORT INFORMATION
  Report Type: 
  Country: None (occurrence: None)
  Receive Date: 20120329
  Receipt Date: 20110609
  Transmission Date: 20120608
  Serious: No
  Sender: FDA-Public Use
  Company Number: US-MYLANLABS-2011S1012180

PATIENT
  Age: 51 Year
  Sex: Female
  Weight: 72.58 kg

DRUGS (6)
  1. FENTANYL-100 [Suspect]
     Indication: NECK PAIN
     Dosage: CHANGED Q72H
     Route: 062
     Dates: start: 20110501
  2. FENTANYL-100 [Suspect]
     Indication: FIBROMYALGIA
     Dosage: CHANGED Q72H
     Route: 062
     Dates: start: 20110501
  3. NORCO [Concomitant]
     Indication: BREAKTHROUGH PAIN
     Dosage: 10MG/325MG
  4. FLEXERIL [Concomitant]
     Indication: MUSCLE SPASMS
  5. FENTANYL-100 [Suspect]
     Indication: BACK PAIN
     Dosage: CHANGED Q72H
     Route: 062
     Dates: start: 20110501
  6. LYRICA [Concomitant]
     Indication: FIBROMYALGIA

REACTIONS (1)
  - APPLICATION SITE BURN [None]
